FAERS Safety Report 12625499 (Version 1)
Quarter: 2016Q3

REPORT INFORMATION
  Report Type: Spontaneous
  Country: US (occurrence: US)
  Receive Date: 20160805
  Receipt Date: 20160805
  Transmission Date: 20161109
  Serious: No
  Sender: FDA-Public Use
  Company Number: US-BAYER-2016-143263

PATIENT
  Age: 70 Year
  Sex: Female
  Weight: 55.78 kg

DRUGS (2)
  1. LOTRIMIN ULTRA ANTIFUNGAL [Suspect]
     Active Substance: BUTENAFINE HYDROCHLORIDE
     Indication: FUNGAL INFECTION
     Dosage: 1 DF, BID
     Route: 061
     Dates: start: 20160719, end: 20160720
  2. LOTRIMIN ANTIFUNGAL (CLOTRIMAZOLE) [Suspect]
     Active Substance: CLOTRIMAZOLE
     Indication: FUNGAL INFECTION
     Dosage: 1 DF, BID
     Route: 061
     Dates: start: 20160720

REACTIONS (2)
  - Drug administered at inappropriate site [None]
  - Off label use [None]

NARRATIVE: CASE EVENT DATE: 20160719
